FAERS Safety Report 5410425-3 (Version None)
Quarter: 2007Q3

REPORT INFORMATION
  Report Type: 
  Country: None (occurrence: None)
  Receive Date: 20070713
  Receipt Date: 20070612
  Transmission Date: 20080115
  Serious: No
  Sender: FDA-Public Use
  Company Number: 2007SP002219

PATIENT
  Age: 70 Year
  Sex: Female
  Weight: 75.7507 kg

DRUGS (3)
  1. LUNESTA [Suspect]
     Indication: INSOMNIA
     Dosage: 3 MG;1X;ORAL
     Route: 048
     Dates: start: 20070609, end: 20070609
  2. LORAZEPAM [Concomitant]
  3. ASPIRIN [Concomitant]

REACTIONS (7)
  - CHILLS [None]
  - DYSGEUSIA [None]
  - FEELING HOT [None]
  - HYPERHIDROSIS [None]
  - MIDDLE INSOMNIA [None]
  - NAUSEA [None]
  - PHARYNGOLARYNGEAL PAIN [None]
